FAERS Safety Report 7569741-1 (Version None)
Quarter: 2011Q2

REPORT INFORMATION
  Report Type: 
  Country: None (occurrence: None)
  Receive Date: 20110624
  Receipt Date: 20110611
  Transmission Date: 20111010
  Serious: Yes (Other)
  Sender: FDA-Public Use
  Company Number: US-JNJFOC-20110605693

PATIENT
  Age: 68 Year
  Sex: Female
  Weight: 127.01 kg

DRUGS (1)
  1. REMICADE [Suspect]
     Indication: PSORIATIC ARTHROPATHY
     Route: 042
     Dates: start: 20080101, end: 20110501

REACTIONS (2)
  - LYMPHOMA [None]
  - OEDEMA PERIPHERAL [None]
